FAERS Safety Report 12269701 (Version 1)
Quarter: 2016Q2

REPORT INFORMATION
  Report Type: Spontaneous
  Country: US (occurrence: US)
  Receive Date: 20160414
  Receipt Date: 20160414
  Transmission Date: 20160815
  Serious: No
  Sender: FDA-Public Use
  Company Number: US-TEVA-648628USA

PATIENT
  Sex: Female

DRUGS (1)
  1. SEASONALE [Suspect]
     Active Substance: ETHINYL ESTRADIOL\LEVONORGESTREL
     Route: 048

REACTIONS (3)
  - Feeling hot [Unknown]
  - Product use issue [Unknown]
  - Uterine leiomyoma [Recovered/Resolved]
